FAERS Safety Report 15268090 (Version 1)
Quarter: 2018Q4

REPORT INFORMATION
  Report Type: Report from Study
  Country: CH (occurrence: CH)
  Receive Date: 20180812
  Receipt Date: 20180812
  Transmission Date: 20190204
  Serious: Yes (Life-Threatening, Hospitalization)
  Sender: FDA-Public Use
  Company Number: CH-TEVA-2018-CH-936898

PATIENT
  Age: 77 Year
  Sex: Female
  Weight: 51 kg

DRUGS (4)
  1. MSB0010718C;PLACEBO (CODE NOT BROKEN) [Suspect]
     Active Substance: AVELUMAB
     Route: 041
     Dates: end: 20180322
  2. CISPLATIN. [Suspect]
     Active Substance: CISPLATIN
     Indication: SQUAMOUS CELL CARCINOMA OF HEAD AND NECK
     Dosage: DAYS 1, 22 AND 43 OF CRT PHASE, IV DRIP
     Route: 041
     Dates: end: 20180212
  3. MSB0010718C;PLACEBO (CODE NOT BROKEN) [Suspect]
     Active Substance: AVELUMAB
     Indication: SQUAMOUS CELL CARCINOMA OF HEAD AND NECK
     Dosage: DAY 1 OF LEAD-IN PHASE; DAYS 8, 25 AND 39 OF CRT PHASE; EVERY 2 WEEKS DURING MAINTENANCE PHASE
     Route: 041
     Dates: start: 20180205
  4. CISPLATIN. [Suspect]
     Active Substance: CISPLATIN
     Dosage: DAYS 1, 22 AND 43 OF CRT PHASE, IV DRIP
     Route: 041
     Dates: end: 20180313

REACTIONS (1)
  - Sepsis [Recovered/Resolved]

NARRATIVE: CASE EVENT DATE: 20180328
